FAERS Safety Report 5292520-5 (Version None)
Quarter: 2007Q2

REPORT INFORMATION
  Report Type: 
  Country: None (occurrence: None)
  Receive Date: 20070410
  Receipt Date: 20070329
  Transmission Date: 20071010
  Serious: Yes (Other)
  Sender: FDA-Public Use
  Company Number: CA-PFIZER INC-2007026247

PATIENT
  Sex: Female
  Weight: 60.8 kg

DRUGS (3)
  1. LYRICA [Suspect]
     Indication: NEURALGIA
  2. CARDIZEM [Concomitant]
  3. MOBIC [Concomitant]

REACTIONS (5)
  - HYPERTENSION [None]
  - OEDEMA PERIPHERAL [None]
  - SENSATION OF HEAVINESS [None]
  - SOMNOLENCE [None]
  - WEIGHT INCREASED [None]
